FAERS Safety Report 13122683 (Version 1)
Quarter: 2017Q1

REPORT INFORMATION
  Report Type: Spontaneous
  Country: US (occurrence: US)
  Receive Date: 20170117
  Receipt Date: 20170117
  Transmission Date: 20170428
  Serious: No
  Sender: FDA-Public Use
  Company Number: US-RECRO GAINESVILLE LLC-REC-2016-000001

PATIENT

DRUGS (6)
  1. VERAPAMIL HYDROCHLORIDE EXTENDED RELEASE [Suspect]
     Active Substance: VERAPAMIL HYDROCHLORIDE
     Indication: HYPERTENSION
     Dosage: 200 MG, QHS
     Route: 048
     Dates: start: 20160111, end: 20160114
  2. VERELAN PM [Concomitant]
     Active Substance: VERAPAMIL HYDROCHLORIDE
     Indication: MITRAL VALVE PROLAPSE
  3. NORTRIPTYLINE [Concomitant]
     Active Substance: NORTRIPTYLINE
     Indication: FIBROMYALGIA
     Dosage: 50 MG, 5 TIMES/WK
     Route: 048
  4. VERELAN PM [Concomitant]
     Active Substance: VERAPAMIL HYDROCHLORIDE
     Indication: HYPERTENSION
     Dosage: UNK
     Route: 048
     Dates: end: 201601
  5. NORTRIPTYLINE [Concomitant]
     Active Substance: NORTRIPTYLINE
     Dosage: 35 MG, 2 TIMES/WK
     Route: 048
  6. VERAPAMIL HYDROCHLORIDE EXTENDED RELEASE [Suspect]
     Active Substance: VERAPAMIL HYDROCHLORIDE
     Indication: MITRAL VALVE PROLAPSE
     Dosage: 200 MG, QHS
     Route: 048
     Dates: start: 20160117, end: 20160117

REACTIONS (4)
  - Heart rate increased [Not Recovered/Not Resolved]
  - Product substitution issue [None]
  - Palpitations [Not Recovered/Not Resolved]
  - Alcohol use [Recovered/Resolved]

NARRATIVE: CASE EVENT DATE: 20160115
